FAERS Safety Report 10279797 (Version 1)
Quarter: 2014Q3

REPORT INFORMATION
  Report Type: Spontaneous
  Country: CA (occurrence: None)
  Receive Date: 20140702
  Receipt Date: 20140702
  Transmission Date: 20150326
  Serious: Yes (Hospitalization)
  Sender: FDA-Public Use
  Company Number: None

PATIENT
  Age: 78 Year
  Sex: Male
  Weight: 61.2 kg

DRUGS (7)
  1. ASA [Concomitant]
     Active Substance: ASPIRIN
  2. MAGNESIUM SUPPLEMENT [Concomitant]
  3. NORVASC [Concomitant]
     Active Substance: AMLODIPINE BESYLATE
  4. LAMIVUDINE. [Concomitant]
     Active Substance: LAMIVUDINE
  5. GLUCOPHAGE [Concomitant]
     Active Substance: METFORMIN HYDROCHLORIDE
  6. SORAFENIB [Suspect]
     Active Substance: SORAFENIB
     Dosage: TOTAL DOSE ADMINISTERED 9200 MG
  7. TRADIENTA [Concomitant]

REACTIONS (3)
  - Chest discomfort [None]
  - Dyspnoea [None]
  - Chest pain [None]

NARRATIVE: CASE EVENT DATE: 20140616
